FAERS Safety Report 5263097-5 (Version None)
Quarter: 2007Q1

REPORT INFORMATION
  Report Type: 
  Country: None (occurrence: None)
  Receive Date: 20070312
  Receipt Date: 20061211
  Transmission Date: 20070707
  Serious: Yes (Other)
  Sender: FDA-Public Use
  Company Number: US-PFIZER INC-2006126039

PATIENT
  Sex: Female
  Weight: 64.4 kg

DRUGS (1)
  1. XALATAN [Suspect]
     Indication: INTRAOCULAR PRESSURE INCREASED
     Route: 047

REACTIONS (10)
  - BLEPHARAL PIGMENTATION [None]
  - CATARACT [None]
  - CHOLELITHIASIS [None]
  - CHROMATURIA [None]
  - INFLUENZA LIKE ILLNESS [None]
  - NAUSEA [None]
  - PYREXIA [None]
  - SKIN DISCOLOURATION [None]
  - VISION BLURRED [None]
  - VOMITING [None]
